FAERS Safety Report 9431739 (Version 1)
Quarter: 2013Q3

REPORT INFORMATION
  Report Type: Spontaneous
  Country: GB (occurrence: GB)
  Receive Date: 20130731
  Receipt Date: 20130731
  Transmission Date: 20140515
  Serious: Yes (Hospitalization, Other)
  Sender: FDA-Public Use
  Company Number: GB-009507513-1307GBR014655

PATIENT
  Age: 55 Year
  Sex: Female

DRUGS (10)
  1. APREPITANT [Suspect]
     Dosage: 80 MG, QD
     Route: 048
  2. CYCLOPHOSPHAMIDE [Concomitant]
     Indication: CHEMOTHERAPY
  3. DEXAMETHASONE [Concomitant]
     Route: 048
  4. EPIRUBICIN HYDROCHLORIDE [Concomitant]
     Indication: CHEMOTHERAPY
  5. FLUOROURACIL [Concomitant]
     Indication: CHEMOTHERAPY
  6. POLYETHYLENE GLYCOL 4000 [Concomitant]
  7. METOCLOPRAMIDE [Concomitant]
  8. MOVICOL [Concomitant]
  9. ONDANSETRON [Concomitant]
  10. OXYTETRACYCLINE [Concomitant]

REACTIONS (2)
  - Hyponatraemia [Recovering/Resolving]
  - Convulsion [Unknown]
